FAERS Safety Report 5101061-7 (Version None)
Quarter: 2006Q3

REPORT INFORMATION
  Report Type: 
  Country: None (occurrence: None)
  Receive Date: 20060911
  Receipt Date: 20060829
  Transmission Date: 20061208
  Serious: Yes (Hospitalization)
  Sender: FDA-Public Use
  Company Number: PHBS2006FI13006

PATIENT
  Age: 66 Year
  Sex: Male

DRUGS (5)
  1. ZOMETA [Suspect]
     Indication: MULTIPLE MYELOMA
     Dosage: 4 MG, UNK
     Route: 042
     Dates: start: 20020101, end: 20060428
  2. KALCIPOS-D [Concomitant]
     Route: 065
  3. SOMAC [Concomitant]
     Route: 065
  4. SENDOXAN [Concomitant]
     Route: 065
  5. PREDNISOLONE [Concomitant]
     Route: 065

REACTIONS (5)
  - BREATH ODOUR [None]
  - DENTAL PROSTHESIS USER [None]
  - DENTAL TREATMENT [None]
  - JAW DISORDER [None]
  - OSTEONECROSIS [None]
